FAERS Safety Report 14355790 (Version 3)
Quarter: 2018Q1

REPORT INFORMATION
  Report Type: Spontaneous
  Country: US (occurrence: US)
  Receive Date: 20180105
  Receipt Date: 20180130
  Transmission Date: 20180509
  Serious: Yes (Other)
  Sender: FDA-Public Use
  Company Number: US-ACORDA-ACO_145567_2017

PATIENT
  Sex: Female

DRUGS (1)
  1. AMPYRA [Suspect]
     Active Substance: DALFAMPRIDINE
     Indication: NYSTAGMUS
     Dosage: 10 MG, BID
     Route: 048

REACTIONS (3)
  - Product use in unapproved indication [Unknown]
  - Therapy cessation [Unknown]
  - Blindness [Unknown]
